FAERS Safety Report 16767802 (Version 1)
Quarter: 2019Q3

REPORT INFORMATION
  Report Type: Spontaneous
  Country: DE (occurrence: DE)
  Receive Date: 20190903
  Receipt Date: 20190903
  Transmission Date: 20191005
  Serious: Yes (Other)
  Sender: FDA-Public Use
  Company Number: DE-MYLANLABS-2019M1081835

PATIENT
  Sex: Male

DRUGS (1)
  1. VALSARTAN DURA [Suspect]
     Active Substance: VALSARTAN
     Indication: PRODUCT USED FOR UNKNOWN INDICATION
     Dosage: 160 MILLIGRAM, QD (ONCE IN THE MORNING)
     Route: 048
     Dates: start: 2015, end: 201807

REACTIONS (1)
  - Mental impairment [Not Recovered/Not Resolved]
